FAERS Safety Report 12435706 (Version 1)
Quarter: 2016Q2

REPORT INFORMATION
  Report Type: Spontaneous
  Country: US (occurrence: US)
  Receive Date: 20160603
  Receipt Date: 20160603
  Transmission Date: 20160815
  Serious: No
  Sender: FDA-Public Use
  Company Number: US-ROCHE-1744424

PATIENT
  Age: 64 Year
  Sex: Female

DRUGS (2)
  1. LISINOPRIL/HCTZ [Concomitant]
     Active Substance: HYDROCHLOROTHIAZIDE\LISINOPRIL
     Indication: HYPERTENSION
     Dosage: 10/25 MG
     Route: 065
  2. XELODA [Suspect]
     Active Substance: CAPECITABINE
     Indication: BREAST CANCER METASTATIC
     Dosage: 3 PILLS IN THE MORNING AND 3 IN THE EVENING
     Route: 065
     Dates: start: 20160330

REACTIONS (8)
  - Rash erythematous [Recovering/Resolving]
  - Hyperkeratosis [Unknown]
  - Rash [Recovering/Resolving]
  - Thermal burn [Recovering/Resolving]
  - Blister [Recovering/Resolving]
  - Skin exfoliation [Unknown]
  - Sunburn [Recovering/Resolving]
  - Haemorrhage [Recovering/Resolving]

NARRATIVE: CASE EVENT DATE: 20160405
